FAERS Safety Report 20995364 (Version 22)
Quarter: 2025Q3

REPORT INFORMATION
  Report Type: Report from Study
  Country: US (occurrence: US)
  Receive Date: 20220622
  Receipt Date: 20250929
  Transmission Date: 20251020
  Serious: Yes (Other)
  Sender: TAKEDA
  Company Number: US-TAKEDA-2022TUS018945

PATIENT
  Sex: Female
  Weight: 60 kg

DRUGS (57)
  1. HUMAN IMMUNOGLOBULIN G [Suspect]
     Active Substance: HUMAN IMMUNOGLOBULIN G
     Indication: Immunodeficiency common variable
     Dosage: 15 GRAM, Q2WEEKS
  2. LIDOCAINE\PRILOCAINE [Suspect]
     Active Substance: LIDOCAINE\PRILOCAINE
     Indication: Product used for unknown indication
  3. ACETAMINOPHEN [Concomitant]
     Active Substance: ACETAMINOPHEN
  4. VITAMIN B [Concomitant]
     Active Substance: VITAMIN B
  5. Tart cherry [Concomitant]
  6. FISH OIL [Concomitant]
     Active Substance: FISH OIL
  7. SILICON DIOXIDE [Concomitant]
     Active Substance: SILICON DIOXIDE
  8. UBIQUINOL [Concomitant]
     Active Substance: UBIQUINOL
  9. VALACYCLOVIR [Concomitant]
     Active Substance: VALACYCLOVIR HYDROCHLORIDE
  10. ALPHA LIPOIC ACID [Concomitant]
     Active Substance: .ALPHA.-LIPOIC ACID
  11. VITAMIN C [Concomitant]
     Active Substance: ASCORBIC ACID
  12. ASTAXANTHIN [Concomitant]
     Active Substance: ASTAXANTHIN
  13. PULMICORT TURBUHALER [Concomitant]
     Active Substance: BUDESONIDE
  14. CHOLINE [Concomitant]
     Active Substance: CHOLINE
  15. METHOCARBAMOL [Concomitant]
     Active Substance: METHOCARBAMOL
  16. NIACIN [Concomitant]
     Active Substance: NIACIN
  17. POLYETHYLENE GLYCOL [Concomitant]
     Active Substance: POLYETHYLENE GLYCOL
  18. XIFAXAN [Concomitant]
     Active Substance: RIFAXIMIN
  19. VITAMIN E [Concomitant]
     Active Substance: .ALPHA.-TOCOPHEROL
  20. CALCIUM CARBONATE\CHOLECALCIFEROL [Concomitant]
     Active Substance: CALCIUM CARBONATE\CHOLECALCIFEROL
  21. POTASSIUM CHLORIDE [Concomitant]
     Active Substance: POTASSIUM CHLORIDE
  22. Collagen with lysine + vitamin c [Concomitant]
  23. CLOTRIMAZOLE [Concomitant]
     Active Substance: CLOTRIMAZOLE
  24. FLUTICASONE PROPIONATE\SALMETEROL XINAFOATE [Concomitant]
     Active Substance: FLUTICASONE PROPIONATE\SALMETEROL XINAFOATE
  25. LYCOPENE [Concomitant]
     Active Substance: LYCOPENE
  26. MAGNESIUM OXIDE [Concomitant]
     Active Substance: MAGNESIUM OXIDE
  27. VITAMIN K [Concomitant]
     Active Substance: PHYTONADIONE
  28. ALBUTEROL SULFATE [Concomitant]
     Active Substance: ALBUTEROL SULFATE
  29. LIDOCAINE [Concomitant]
     Active Substance: LIDOCAINE
  30. GLUTATHIONE [Concomitant]
     Active Substance: GLUTATHIONE
  31. BIOTIN [Concomitant]
     Active Substance: BIOTIN
  32. FASLODEX [Concomitant]
     Active Substance: FULVESTRANT
  33. RIZATRIPTAN [Concomitant]
     Active Substance: RIZATRIPTAN
  34. DIPHENHYDRAMINE HYDROCHLORIDE [Concomitant]
     Active Substance: DIPHENHYDRAMINE HYDROCHLORIDE
  35. XGEVA [Concomitant]
     Active Substance: DENOSUMAB
  36. DIETARY SUPPLEMENT\HERBALS\MILK THISTLE [Concomitant]
     Active Substance: MILK THISTLE
  37. METAXALONE [Concomitant]
     Active Substance: METAXALONE
  38. VITAMIN D3 [Concomitant]
     Active Substance: CHOLECALCIFEROL
  39. ARGININE [Concomitant]
     Active Substance: ARGININE
  40. SELENIUM [Concomitant]
     Active Substance: SELENIUM
  41. ACETYLCARNITINE [Concomitant]
     Active Substance: ACETYLCARNITINE
  42. ACETYLCARNITINE [Concomitant]
     Active Substance: ACETYLCARNITINE
  43. EPINEPHRINE [Concomitant]
     Active Substance: EPINEPHRINE
  44. Lmx [Concomitant]
  45. THIAMINE HYDROCHLORIDE [Concomitant]
     Active Substance: THIAMINE HYDROCHLORIDE
  46. PYRIDOXINE [Concomitant]
     Active Substance: PYRIDOXINE
  47. VITAMIN B12 [Concomitant]
     Active Substance: CYANOCOBALAMIN
  48. MENAQUINONE 6 [Concomitant]
     Active Substance: MENAQUINONE 6
  49. Arginine cardio [Concomitant]
  50. VITAMIN B2 [Concomitant]
     Active Substance: RIBOFLAVIN
  51. CHROMIUM [Concomitant]
     Active Substance: CHROMIC CHLORIDE\CHROMIUM
  52. Metagenics benesom [Concomitant]
  53. Spm [Concomitant]
  54. HERBALS [Concomitant]
     Active Substance: HERBALS
  55. Super GLA [Concomitant]
  56. TRIAMCINOLONE ACETONIDE [Concomitant]
     Active Substance: TRIAMCINOLONE ACETONIDE
  57. CHOLECALCIFEROL [Concomitant]
     Active Substance: CHOLECALCIFEROL

REACTIONS (35)
  - Neoplasm malignant [Unknown]
  - Breast cancer metastatic [Unknown]
  - Colitis microscopic [Unknown]
  - Carcinoembryonic antigen increased [Unknown]
  - Immunodeficiency [Unknown]
  - Gastrointestinal disorder [Unknown]
  - Oral pain [Unknown]
  - Food craving [Unknown]
  - Constipation [Unknown]
  - Tendonitis [Unknown]
  - Fat tissue decreased [Unknown]
  - Infusion site scar [Unknown]
  - Herpes virus infection [Unknown]
  - Lung opacity [Unknown]
  - Skin ulcer [Unknown]
  - Ear discomfort [Unknown]
  - Infection [Unknown]
  - Genital herpes [Unknown]
  - Skin reaction [Unknown]
  - Ulcer [Unknown]
  - Cardiac disorder [Unknown]
  - Arthritis [Unknown]
  - Skin disorder [Unknown]
  - Product use complaint [Unknown]
  - Incorrect drug administration rate [Unknown]
  - Product use issue [Unknown]
  - Inappropriate schedule of product administration [Unknown]
  - Sinusitis [Unknown]
  - Epistaxis [Unknown]
  - Stomatitis [Unknown]
  - Pain in extremity [Unknown]
  - Infusion site swelling [Unknown]
  - Headache [Unknown]
  - Fatigue [Unknown]
  - Diarrhoea [Unknown]

NARRATIVE: CASE EVENT DATE: 19990101
